FAERS Safety Report 9288101 (Version 1)
Quarter: 2013Q2

REPORT INFORMATION
  Report Type: Spontaneous
  Country: US (occurrence: None)
  Receive Date: 20130513
  Receipt Date: 20130513
  Transmission Date: 20140414
  Serious: Yes (Other)
  Sender: FDA-Public Use
  Company Number: None

PATIENT
  Age: 63 Year
  Sex: Female
  Weight: 73.94 kg

DRUGS (2)
  1. MUSINEX DM [Suspect]
     Indication: NASAL CONGESTION
     Dosage: 1 PILL 12 HR PO
     Dates: start: 20130508, end: 20130510
  2. MUSINEX DM [Suspect]
     Indication: NASOPHARYNGITIS
     Dosage: 1 PILL 12 HR PO
     Dates: start: 20130508, end: 20130510

REACTIONS (1)
  - Diarrhoea [None]
